FAERS Safety Report 10419592 (Version 1)
Quarter: 2014Q2

REPORT INFORMATION
  Report Type: Spontaneous
  Country: US (occurrence: None)
  Receive Date: 20140618
  Receipt Date: 20140618
  Transmission Date: 20141212
  Serious: Yes (Other)
  Sender: FDA-Public Use
  Company Number: 087195

PATIENT
  Age: 41 Year
  Sex: Male
  Weight: 59 kg

DRUGS (1)
  1. LACOSAMIDE [Suspect]
     Indication: CONVULSION
     Dosage: (100 MG BID, 100 MG X 2/DAY; TOTAL DAILY DOSE 200 MG)
     Dates: start: 20130501

REACTIONS (1)
  - Convulsion [None]
